FAERS Safety Report 15719458 (Version 3)
Quarter: 2019Q3

REPORT INFORMATION
  Report Type: Spontaneous
  Country: US (occurrence: US)
  Receive Date: 20181213
  Receipt Date: 20190709
  Transmission Date: 20191004
  Serious: Yes (Other)
  Sender: FDA-Public Use
  Company Number: US-SA-2018SA336172

PATIENT
  Age: 41 Year
  Sex: Female
  Weight: 81.65 kg

DRUGS (8)
  1. DOCETAXEL. [Suspect]
     Active Substance: DOCETAXEL
     Dosage: 144.8 MG, Q3W
     Route: 042
     Dates: start: 20120907, end: 20120907
  2. DOCETAXEL. [Suspect]
     Active Substance: DOCETAXEL
     Dosage: 115.8 MG, Q3W
     Route: 042
     Dates: start: 20121005, end: 20121005
  3. NEOSAR [Concomitant]
     Active Substance: CYCLOPHOSPHAMIDE
     Dosage: UNK
     Route: 065
  4. CYTOXAN [Concomitant]
     Active Substance: CYCLOPHOSPHAMIDE
     Dosage: UNK
     Route: 065
  5. DOCETAXEL. [Suspect]
     Active Substance: DOCETAXEL
     Indication: BREAST CANCER FEMALE
     Dosage: 144.8 MG, Q3W
     Route: 042
     Dates: start: 20120727, end: 20120727
  6. DOCETAXEL. [Suspect]
     Active Substance: DOCETAXEL
     Dosage: 144.8 MG, Q3W
     Route: 042
     Dates: start: 20120817, end: 20120817
  7. DOCETAXEL. [Suspect]
     Active Substance: DOCETAXEL
     Dosage: 115.8 MG, Q3W
     Route: 042
     Dates: start: 20121026, end: 20121026
  8. DOCETAXEL. [Suspect]
     Active Substance: DOCETAXEL
     Dosage: 115.8 MG, Q3W
     Route: 042
     Dates: start: 20121115, end: 20121115

REACTIONS (1)
  - Alopecia [Recovering/Resolving]

NARRATIVE: CASE EVENT DATE: 201305
